FAERS Safety Report 9710344 (Version 2)
Quarter: 2013Q4

REPORT INFORMATION
  Report Type: Spontaneous
  Country: US (occurrence: US)
  Receive Date: 20131126
  Receipt Date: 20131126
  Transmission Date: 20140711
  Serious: No
  Sender: FDA-Public Use
  Company Number: US-BRISTOL-MYERS SQUIBB COMPANY-18803429

PATIENT
  Age: 63 Year
  Sex: Male
  Weight: 170.06 kg

DRUGS (2)
  1. BYETTA [Suspect]
     Indication: TYPE 2 DIABETES MELLITUS
     Dosage: DOSE REDUCED TO 5MCG IN MORNING,LOT NO: A911784C;EXPDT:OCT13
     Route: 058
     Dates: start: 20130416
  2. METFORMIN [Concomitant]
     Route: 048

REACTIONS (7)
  - Palpitations [Recovered/Resolved]
  - Dry mouth [Unknown]
  - Nausea [Not Recovered/Not Resolved]
  - Vomiting [Not Recovered/Not Resolved]
  - Diarrhoea [Recovering/Resolving]
  - Weight decreased [Unknown]
  - Treatment noncompliance [Unknown]
